FAERS Safety Report 5463925-4 (Version None)
Quarter: 2007Q3

REPORT INFORMATION
  Report Type: 
  Country: None (occurrence: None)
  Receive Date: 20070921
  Receipt Date: 20070606
  Transmission Date: 20080115
  Serious: No
  Sender: FDA-Public Use
  Company Number: A0654396A

PATIENT
  Age: 68 Year
  Sex: Female

DRUGS (4)
  1. AVANDARYL [Suspect]
     Dosage: 1TAB TWICE PER DAY
     Route: 048
     Dates: start: 20070323, end: 20070601
  2. LASIX [Concomitant]
  3. MICARDIS [Concomitant]
  4. METFORMIN HCL [Concomitant]

REACTIONS (2)
  - DYSPNOEA [None]
  - OEDEMA [None]
